FAERS Safety Report 5719998-4 (Version None)
Quarter: 2008Q2

REPORT INFORMATION
  Report Type: 
  Country: None (occurrence: None)
  Receive Date: 20080424
  Receipt Date: 20080424
  Transmission Date: 20081010
  Serious: Yes (Hospitalization)
  Sender: FDA-Public Use
  Company Number: None

PATIENT
  Age: 34 Year
  Sex: Female
  Weight: 80.3 kg

DRUGS (1)
  1. BUPROPION HCL [Suspect]
     Indication: DEPRESSION
     Dosage: 150 MG BID PO
     Route: 048
     Dates: start: 20071218, end: 20080206

REACTIONS (3)
  - BLOOD PRESSURE INCREASED [None]
  - DIZZINESS [None]
  - HEADACHE [None]
